FAERS Safety Report 19791197 (Version 1)
Quarter: 2021Q3

REPORT INFORMATION
  Report Type: Spontaneous
  Country: US (occurrence: US)
  Receive Date: 20210906
  Receipt Date: 20210906
  Transmission Date: 20211014
  Serious: No
  Sender: FDA-Public Use
  Company Number: US-JNJFOC-20210846972

PATIENT
  Age: 85 Year
  Sex: Male

DRUGS (1)
  1. PEPCID COMPLETE [Suspect]
     Active Substance: CALCIUM CARBONATE\FAMOTIDINE\MAGNESIUM HYDROXIDE
     Indication: ABDOMINAL PAIN UPPER
     Dosage: 2 A DAY, TWICE
     Route: 065
     Dates: start: 202108

REACTIONS (2)
  - Product use in unapproved indication [Unknown]
  - Asthenia [Unknown]

NARRATIVE: CASE EVENT DATE: 202108
